FAERS Safety Report 16498924 (Version 5)
Quarter: 2019Q4

REPORT INFORMATION
  Report Type: Report from Study
  Country: US (occurrence: US)
  Receive Date: 20190630
  Receipt Date: 20191101
  Transmission Date: 20200122
  Serious: Yes (Hospitalization, Other)
  Sender: FDA-Public Use
  Company Number: US-JNJFOC-20180522116

PATIENT
  Age: 57 Year
  Sex: Male

DRUGS (20)
  1. IMBRUVICA [Concomitant]
     Active Substance: IBRUTINIB
     Route: 048
     Dates: start: 20140215, end: 20180501
  2. GABAPENTIN. [Concomitant]
     Active Substance: GABAPENTIN
  3. IMBRUVICA [Suspect]
     Active Substance: IBRUTINIB
     Indication: CHRONIC LYMPHOCYTIC LEUKAEMIA
     Route: 048
     Dates: start: 20180410, end: 201808
  4. IMBRUVICA [Concomitant]
     Active Substance: IBRUTINIB
     Route: 048
     Dates: start: 20181029, end: 201902
  5. MOTRIN [Concomitant]
     Active Substance: IBUPROFEN
  6. IMBRUVICA [Suspect]
     Active Substance: IBRUTINIB
     Route: 048
     Dates: start: 20180416, end: 20180510
  7. IMBRUVICA [Concomitant]
     Active Substance: IBRUTINIB
     Indication: CHRONIC LYMPHOCYTIC LEUKAEMIA
     Dates: start: 20160402, end: 20180409
  8. LYRICA [Concomitant]
     Active Substance: PREGABALIN
  9. FLOVENT [Concomitant]
     Active Substance: FLUTICASONE PROPIONATE
  10. LIDODERM [Concomitant]
     Active Substance: LIDOCAINE
  11. LORATADINE. [Concomitant]
     Active Substance: LORATADINE
  12. IMBRUVICA [Suspect]
     Active Substance: IBRUTINIB
     Route: 048
     Dates: start: 20181029
  13. IMBRUVICA [Suspect]
     Active Substance: IBRUTINIB
     Route: 048
     Dates: start: 20190126
  14. IMBRUVICA [Suspect]
     Active Substance: IBRUTINIB
     Route: 048
     Dates: start: 20190201
  15. IMBRUVICA [Concomitant]
     Active Substance: IBRUTINIB
     Route: 048
     Dates: start: 20140303, end: 20180415
  16. IMBRUVICA [Concomitant]
     Active Substance: IBRUTINIB
     Route: 048
     Dates: start: 20181029, end: 20190129
  17. IMBRUVICA [Concomitant]
     Active Substance: IBRUTINIB
     Route: 048
     Dates: start: 20181101, end: 20190126
  18. IMBRUVICA [Suspect]
     Active Substance: IBRUTINIB
     Route: 048
     Dates: start: 20190129
  19. PRILOSEC [Concomitant]
     Active Substance: OMEPRAZOLE MAGNESIUM
  20. PROVENTIL [Concomitant]
     Active Substance: ALBUTEROL

REACTIONS (22)
  - Memory impairment [Unknown]
  - Pneumonia mycoplasmal [Recovered/Resolved]
  - Wound [Not Recovered/Not Resolved]
  - Lymphocytosis [Recovering/Resolving]
  - Blood creatinine increased [Unknown]
  - Neuralgia [Not Recovered/Not Resolved]
  - Malaise [Recovered/Resolved]
  - Neutrophil count decreased [Recovered/Resolved]
  - Muscle tone disorder [Unknown]
  - Localised infection [Recovering/Resolving]
  - Platelet count decreased [Unknown]
  - White blood cell count decreased [Not Recovered/Not Resolved]
  - Fatigue [Not Recovered/Not Resolved]
  - Onychoclasis [Not Recovered/Not Resolved]
  - Rash [Recovered/Resolved]
  - Disease progression [Recovered/Resolved]
  - Product dose omission [Unknown]
  - Abdominal distension [Unknown]
  - Product label issue [Unknown]
  - Product dose omission [Unknown]
  - White blood cell count increased [Recovering/Resolving]
  - Nasopharyngitis [Recovered/Resolved]

NARRATIVE: CASE EVENT DATE: 20180510
